FAERS Safety Report 24460266 (Version 1)
Quarter: 2024Q4

REPORT INFORMATION
  Report Type: Spontaneous
  Country: SE (occurrence: SE)
  Receive Date: 20241018
  Receipt Date: 20241018
  Transmission Date: 20250115
  Serious: No
  Sender: ROCHE
  Company Number: SE-ROCHE-3557405

PATIENT
  Age: 10 Year
  Weight: 70.0 kg

DRUGS (1)
  1. MABTHERA [Suspect]
     Active Substance: RITUXIMAB
     Indication: Nephrotic syndrome
     Route: 041

REACTIONS (2)
  - Off label use [Unknown]
  - No adverse event [Unknown]
